FAERS Safety Report 9638480 (Version 1)
Quarter: 2013Q4

REPORT INFORMATION
  Report Type: Spontaneous
  Country: US (occurrence: US)
  Receive Date: 20131022
  Receipt Date: 20131022
  Transmission Date: 20140711
  Serious: Yes (Other)
  Sender: FDA-Public Use
  Company Number: US-OTSUKA-US-2013-11933

PATIENT
  Sex: Female
  Weight: 58.96 kg

DRUGS (4)
  1. ABILIFY MAINTENA [Suspect]
     Indication: BIPOLAR DISORDER
     Dosage: UNK
     Route: 030
  2. ABILIFY [Suspect]
     Indication: BIPOLAR DISORDER
     Dosage: UNK
     Route: 048
  3. LITHIUM [Concomitant]
     Indication: AGITATION
     Dosage: UNK
  4. VISTARIL [Concomitant]
     Indication: AGITATION
     Dosage: UNK

REACTIONS (3)
  - Memory impairment [Not Recovered/Not Resolved]
  - Paranoia [Not Recovered/Not Resolved]
  - Off label use [Unknown]
